FAERS Safety Report 23867265 (Version 10)
Quarter: 2025Q2

REPORT INFORMATION
  Report Type: Report from Study
  Country: DE (occurrence: DE)
  Receive Date: 20240517
  Receipt Date: 20250407
  Transmission Date: 20250717
  Serious: Yes (Other)
  Sender: NOVARTIS
  Company Number: DE-002147023-NVSC2024DE042486

PATIENT
  Age: 37 Year
  Sex: Female
  Weight: 93 kg

DRUGS (50)
  1. COSENTYX [Suspect]
     Active Substance: SECUKINUMAB
     Indication: Hidradenitis
     Route: 058
     Dates: start: 20240216, end: 20240216
  2. COSENTYX [Suspect]
     Active Substance: SECUKINUMAB
     Route: 058
     Dates: start: 20240223, end: 20240223
  3. COSENTYX [Suspect]
     Active Substance: SECUKINUMAB
     Route: 058
     Dates: start: 20240301, end: 20240301
  4. COSENTYX [Suspect]
     Active Substance: SECUKINUMAB
     Route: 058
     Dates: start: 20240308, end: 20240308
  5. COSENTYX [Suspect]
     Active Substance: SECUKINUMAB
     Route: 058
     Dates: start: 20240315, end: 20240315
  6. COSENTYX [Suspect]
     Active Substance: SECUKINUMAB
     Route: 058
     Dates: start: 20240412, end: 20240412
  7. COSENTYX [Suspect]
     Active Substance: SECUKINUMAB
     Route: 058
     Dates: start: 20240510, end: 20240510
  8. COSENTYX [Suspect]
     Active Substance: SECUKINUMAB
     Route: 058
     Dates: start: 20240607, end: 20240607
  9. COSENTYX [Suspect]
     Active Substance: SECUKINUMAB
     Route: 058
     Dates: start: 20240705, end: 20240705
  10. COSENTYX [Suspect]
     Active Substance: SECUKINUMAB
     Route: 058
     Dates: start: 20240802, end: 20240802
  11. COSENTYX [Suspect]
     Active Substance: SECUKINUMAB
     Route: 058
     Dates: start: 20240906, end: 20240906
  12. COSENTYX [Suspect]
     Active Substance: SECUKINUMAB
     Route: 058
     Dates: start: 20241004, end: 20241004
  13. COSENTYX [Suspect]
     Active Substance: SECUKINUMAB
     Route: 058
     Dates: start: 20241101, end: 20241101
  14. COSENTYX [Suspect]
     Active Substance: SECUKINUMAB
     Route: 058
     Dates: start: 20241129, end: 20241129
  15. COSENTYX [Suspect]
     Active Substance: SECUKINUMAB
     Route: 058
     Dates: start: 20241213, end: 20241213
  16. COSENTYX [Suspect]
     Active Substance: SECUKINUMAB
     Route: 058
     Dates: start: 20240216
  17. COSENTYX [Suspect]
     Active Substance: SECUKINUMAB
     Route: 058
     Dates: start: 20240223
  18. COSENTYX [Suspect]
     Active Substance: SECUKINUMAB
     Route: 058
     Dates: start: 20240301
  19. COSENTYX [Suspect]
     Active Substance: SECUKINUMAB
     Route: 058
     Dates: start: 20240308
  20. COSENTYX [Suspect]
     Active Substance: SECUKINUMAB
     Route: 058
     Dates: start: 20240315
  21. COSENTYX [Suspect]
     Active Substance: SECUKINUMAB
     Route: 058
     Dates: start: 20240412
  22. COSENTYX [Suspect]
     Active Substance: SECUKINUMAB
     Route: 058
     Dates: start: 20240510
  23. COSENTYX [Suspect]
     Active Substance: SECUKINUMAB
     Route: 058
     Dates: start: 20240607
  24. COSENTYX [Suspect]
     Active Substance: SECUKINUMAB
     Route: 058
     Dates: start: 20240705
  25. COSENTYX [Suspect]
     Active Substance: SECUKINUMAB
     Route: 058
     Dates: start: 20240802
  26. COSENTYX [Suspect]
     Active Substance: SECUKINUMAB
     Route: 058
     Dates: start: 20240906
  27. COSENTYX [Suspect]
     Active Substance: SECUKINUMAB
     Route: 058
     Dates: start: 20241004
  28. COSENTYX [Suspect]
     Active Substance: SECUKINUMAB
     Route: 058
     Dates: start: 20241101
  29. COSENTYX [Suspect]
     Active Substance: SECUKINUMAB
     Route: 058
     Dates: start: 20241129
  30. COSENTYX [Suspect]
     Active Substance: SECUKINUMAB
     Route: 058
     Dates: start: 20241213
  31. COSENTYX [Suspect]
     Active Substance: SECUKINUMAB
     Route: 058
     Dates: start: 20241227
  32. COSENTYX [Suspect]
     Active Substance: SECUKINUMAB
     Route: 058
     Dates: start: 20250110
  33. COSENTYX [Suspect]
     Active Substance: SECUKINUMAB
     Route: 058
     Dates: start: 20250124
  34. COSENTYX [Suspect]
     Active Substance: SECUKINUMAB
     Route: 058
     Dates: start: 20250207
  35. COSENTYX [Suspect]
     Active Substance: SECUKINUMAB
     Route: 058
     Dates: start: 20250221
  36. COSENTYX [Suspect]
     Active Substance: SECUKINUMAB
     Route: 058
     Dates: start: 20241227, end: 20241227
  37. COSENTYX [Suspect]
     Active Substance: SECUKINUMAB
     Route: 058
     Dates: start: 20250110, end: 20250110
  38. COSENTYX [Suspect]
     Active Substance: SECUKINUMAB
     Route: 058
     Dates: start: 20250124, end: 20250124
  39. COSENTYX [Suspect]
     Active Substance: SECUKINUMAB
     Route: 058
     Dates: start: 20250207, end: 20250207
  40. COSENTYX [Suspect]
     Active Substance: SECUKINUMAB
     Route: 058
     Dates: start: 20250221, end: 20250221
  41. COSENTYX [Suspect]
     Active Substance: SECUKINUMAB
     Route: 058
     Dates: start: 20240906
  42. COSENTYX [Suspect]
     Active Substance: SECUKINUMAB
     Route: 058
     Dates: start: 20241004
  43. COSENTYX [Suspect]
     Active Substance: SECUKINUMAB
     Route: 058
     Dates: start: 20241101
  44. COSENTYX [Suspect]
     Active Substance: SECUKINUMAB
     Route: 058
     Dates: start: 20241129
  45. COSENTYX [Suspect]
     Active Substance: SECUKINUMAB
     Route: 058
     Dates: start: 20241213
  46. COSENTYX [Suspect]
     Active Substance: SECUKINUMAB
     Route: 058
     Dates: start: 20241227
  47. COSENTYX [Suspect]
     Active Substance: SECUKINUMAB
     Route: 058
     Dates: start: 20250110
  48. COSENTYX [Suspect]
     Active Substance: SECUKINUMAB
     Route: 058
     Dates: start: 20250124
  49. COSENTYX [Suspect]
     Active Substance: SECUKINUMAB
     Route: 058
     Dates: start: 20250207
  50. COSENTYX [Suspect]
     Active Substance: SECUKINUMAB
     Route: 058
     Dates: start: 20250221

REACTIONS (7)
  - Breast abscess [Recovered/Resolved]
  - Groin abscess [Recovered/Resolved]
  - Nodule [Recovered/Resolved]
  - Abscess [Recovered/Resolved]
  - Breast mass [Recovered/Resolved]
  - Blepharitis [Recovered/Resolved]
  - Breast mass [Recovered/Resolved]

NARRATIVE: CASE EVENT DATE: 20240223
